FAERS Safety Report 8758032 (Version 4)
Quarter: 2013Q1

REPORT INFORMATION
  Report Type: Spontaneous
  Country: US (occurrence: US)
  Receive Date: 20120828
  Receipt Date: 20130307
  Transmission Date: 20140127
  Serious: Yes (Hospitalization)
  Sender: FDA-Public Use
  Company Number: US-ELI_LILLY_AND_COMPANY-US201208006514

PATIENT
  Age: 52 Year
  Sex: Female
  Weight: 64.4 kg

DRUGS (8)
  1. ZYPREXA ZYDIS [Suspect]
     Indication: MANIA
     Dosage: 15 MG, EACH EVENING
     Dates: start: 201206
  2. ZYPREXA ZYDIS [Suspect]
     Dosage: 20 MG, BID
     Route: 065
  3. ZYPREXA ZYDIS [Suspect]
     Dosage: 15 MG, EACH MORNING
     Route: 065
     Dates: start: 20120822
  4. ZYPREXA ZYDIS [Suspect]
     Dosage: 20 MG, EACH EVENING
     Route: 065
     Dates: start: 20120822
  5. ZYPREXA [Suspect]
     Dosage: 2.5 MG, UNK
     Dates: start: 2011
  6. FERROUS SULFATE [Concomitant]
     Dosage: 325 MG, QD
     Route: 065
  7. MIRTAZAPINE [Concomitant]
     Dosage: 30 MG, EACH EVENING
     Route: 065
  8. OMEPRAZOLE [Concomitant]
     Dosage: 20 MG, QD
     Route: 065

REACTIONS (2)
  - Mania [Recovered/Resolved]
  - Prescribed overdose [Unknown]
